FAERS Safety Report 4540714-6 (Version None)
Quarter: 2004Q4

REPORT INFORMATION
  Report Type: 
  Country: None (occurrence: None)
  Receive Date: 20041229
  Receipt Date: 20041111
  Transmission Date: 20050328
  Serious: Yes (Life-Threatening)
  Sender: FDA-Public Use
  Company Number: 200413472JP

PATIENT
  Age: 31 Year
  Sex: Male
  Weight: 60 kg

DRUGS (8)
  1. KETEK [Suspect]
     Indication: TONSILLITIS
     Route: 048
     Dates: start: 20040824, end: 20040828
  2. KYORIN AP 2 [Concomitant]
     Indication: TONSILLITIS
     Route: 048
     Dates: start: 20040817, end: 20040821
  3. TRANSAMIN [Concomitant]
     Indication: TONSILLITIS
     Route: 048
     Dates: start: 20040817, end: 20040821
  4. LOXOPROFEN [Concomitant]
     Indication: ACUTE TONSILLITIS
     Route: 048
     Dates: start: 20040817, end: 20040821
  5. MUCODYNE [Concomitant]
     Indication: ACUTE TONSILLITIS
     Route: 048
     Dates: start: 20040817, end: 20040821
  6. FLOMOX [Concomitant]
     Indication: TONSILLITIS
     Route: 048
     Dates: start: 20040817, end: 20040821
  7. LOXONIN [Concomitant]
     Indication: TONSILLITIS
     Route: 048
     Dates: start: 20040817
  8. MUCOSOLVAN [Concomitant]
     Indication: TONSILLITIS
     Route: 048
     Dates: end: 20040817

REACTIONS (15)
  - ASPIRATION [None]
  - BLOOD PRESSURE DECREASED [None]
  - BODY TEMPERATURE INCREASED [None]
  - CONVULSION [None]
  - DEPRESSED LEVEL OF CONSCIOUSNESS [None]
  - ENCEPHALITIS HERPES [None]
  - FUSOBACTERIUM INFECTION [None]
  - HEART RATE INCREASED [None]
  - LOSS OF CONSCIOUSNESS [None]
  - MEMORY IMPAIRMENT [None]
  - RESPIRATORY DISORDER [None]
  - SEPTIC SHOCK [None]
  - THERAPY NON-RESPONDER [None]
  - UNEVALUABLE EVENT [None]
  - VOMITING [None]
